APPROVED DRUG PRODUCT: DESOXIMETASONE
Active Ingredient: DESOXIMETASONE
Strength: 0.25%
Dosage Form/Route: OINTMENT;TOPICAL
Application: A205206 | Product #001 | TE Code: AB
Applicant: ZYDUS LIFESCIENCES LTD
Approved: Sep 19, 2017 | RLD: No | RS: Yes | Type: RX